FAERS Safety Report 8523600-6 (Version None)
Quarter: 2012Q3

REPORT INFORMATION
  Report Type: 
  Country: None (occurrence: None)
  Receive Date: 20120709
  Receipt Date: 20110221
  Transmission Date: 20120928
  Serious: Yes (Hospitalization)
  Sender: FDA-Public Use
  Company Number: 2011AP000303

PATIENT
  Age: 59 Year
  Sex: Male

DRUGS (4)
  1. SIMVASTATIN [Suspect]
     Indication: HYPERCHOLESTEROLAEMIA
     Dosage: 20 MG; HS PO
     Route: 048
  2. SIMVASTATIN [Suspect]
     Indication: CORONARY ARTERY DISEASE
     Dosage: 20 MG; HS PO
     Route: 048
  3. DILTIAZEM HYDROCHLORIDE [Suspect]
     Indication: ANGINA PECTORIS
     Dosage: 30 MG; BID; PO
     Route: 048
  4. ASPIRIN [Concomitant]

REACTIONS (7)
  - RHABDOMYOLYSIS [None]
  - ASTHENIA [None]
  - EYELID OEDEMA [None]
  - BLOOD CREATININE INCREASED [None]
  - DRUG INTERACTION [None]
  - THYROID ATROPHY [None]
  - ANGINA PECTORIS [None]
